FAERS Safety Report 5586493-5 (Version None)
Quarter: 2007Q4

REPORT INFORMATION
  Report Type: 
  Country: None (occurrence: None)
  Receive Date: 20071205
  Receipt Date: 20061213
  Transmission Date: 20080405
  Serious: Yes (Other)
  Sender: FDA-Public Use
  Company Number: HQWYE386318DEC06

PATIENT
  Age: 41 Year
  Sex: Female
  Weight: 77.18 kg

DRUGS (6)
  1. EFFEXOR XR [Suspect]
     Dosage: 150 MG 1X PER 1 DAY, ORAL
     Route: 048
     Dates: start: 20050101, end: 20061201
  2. ADDERALL XR (AMPHETAMINE ASPARTATE/AMPHETAMINE SULFATE/DEXTROAMPHETAMI [Suspect]
     Dosage: 90 MG 1X PER 1 DAY, ORAL ; 120 MG 1X PER 1 DAY, ORAL
     Route: 048
     Dates: start: 20050101
  3. TOPROL-XL [Concomitant]
  4. HYDROCHLOROTHIAZIDE [Concomitant]
  5. LIPITOR [Concomitant]
  6. DILTIAZEM [Concomitant]

REACTIONS (3)
  - DRUG INTERACTION [None]
  - HYPERTENSION [None]
  - TACHYCARDIA [None]
